FAERS Safety Report 13026961 (Version 1)
Quarter: 2016Q4

REPORT INFORMATION
  Report Type: Spontaneous
  Country: IT (occurrence: IT)
  Receive Date: 20161214
  Receipt Date: 20161214
  Transmission Date: 20170207
  Serious: Yes (Hospitalization)
  Sender: FDA-Public Use
  Company Number: IT-PFIZER INC-2016573730

PATIENT
  Age: 27 Year
  Sex: Female

DRUGS (6)
  1. SEROQUEL [Suspect]
     Active Substance: QUETIAPINE FUMARATE
     Indication: BIPOLAR DISORDER
     Dosage: 200 MG, DAILY
     Route: 048
     Dates: start: 20161205, end: 20161205
  2. FLURAZEPAM [Suspect]
     Active Substance: FLURAZEPAM\FLURAZEPAM HYDROCHLORIDE
     Indication: INTENTIONAL SELF-INJURY
     Dosage: 12 DF, SINGLE
     Route: 048
     Dates: start: 20161205, end: 20161205
  3. TACHIPIRINA [Suspect]
     Active Substance: ACETAMINOPHEN
     Indication: INTENTIONAL SELF-INJURY
     Dosage: 5 G, SINGLE
     Route: 048
     Dates: start: 20161205, end: 20161205
  4. EFFEXOR XR [Suspect]
     Active Substance: VENLAFAXINE HYDROCHLORIDE
     Indication: INTENTIONAL SELF-INJURY
     Dosage: UNK, SINGLE
     Route: 048
     Dates: start: 20161205, end: 20161205
  5. DEPAKIN [Suspect]
     Active Substance: VALPROATE SODIUM
     Indication: INTENTIONAL SELF-INJURY
     Dosage: 10 DF, SINGLE
     Route: 048
     Dates: start: 20161205, end: 20161205
  6. MOMENT [Suspect]
     Active Substance: IBUPROFEN
     Indication: INTENTIONAL SELF-INJURY
     Dosage: 12 DF, SINGLE
     Route: 048
     Dates: start: 20161205, end: 20161205

REACTIONS (2)
  - Intentional self-injury [Recovered/Resolved]
  - Sopor [Recovered/Resolved]

NARRATIVE: CASE EVENT DATE: 20161205
